FAERS Safety Report 8954492 (Version 1)
Quarter: 2012Q4

REPORT INFORMATION
  Report Type: 
  Country: DE (occurrence: DE)
  Receive Date: 20121210
  Receipt Date: 20121210
  Transmission Date: 20130627
  Serious: Yes (Hospitalization)
  Sender: FDA-Public Use
  Company Number: PHHY2012DE112501

PATIENT
  Age: 82 Year
  Sex: Female

DRUGS (4)
  1. GLIVEC [Suspect]
     Indication: CHRONIC MYELOID LEUKAEMIA
     Dosage: 400 mg, UNK
     Dates: start: 20120312, end: 20120606
  2. INSULIN [Concomitant]
     Indication: TYPE 2 DIABETES MELLITUS
  3. BLOPRESS [Concomitant]
  4. L-THYROXIN [Concomitant]

REACTIONS (1)
  - Epilepsy [Recovering/Resolving]
